FAERS Safety Report 4434373-0 (Version None)
Quarter: 2004Q3

REPORT INFORMATION
  Report Type: 
  Country: None (occurrence: None)
  Receive Date: 20040825
  Receipt Date: 20040805
  Transmission Date: 20050211
  Serious: Yes (Other)
  Sender: FDA-Public Use
  Company Number: USA040874627

PATIENT
  Age: 51 Year
  Sex: Female
  Weight: 77 kg

DRUGS (3)
  1. HUMULIN N [Suspect]
     Indication: DIABETES MELLITUS
     Dosage: 60 U/1 DAY
     Dates: start: 20030901
  2. NOVOLOG [Concomitant]
  3. MS CONTIN [Concomitant]

REACTIONS (13)
  - ABASIA [None]
  - BLOOD GLUCOSE DECREASED [None]
  - BLOOD GLUCOSE FLUCTUATION [None]
  - CEREBROVASCULAR ACCIDENT [None]
  - CONVULSION [None]
  - FEAR [None]
  - FEELING ABNORMAL [None]
  - HEADACHE [None]
  - HYPERTENSION [None]
  - INSOMNIA [None]
  - NEUROPATHY [None]
  - PHARMACEUTICAL PRODUCT COMPLAINT [None]
  - THINKING ABNORMAL [None]
